FAERS Safety Report 6014357-1 (Version None)
Quarter: 2008Q4

REPORT INFORMATION
  Report Type: 
  Country: None (occurrence: None)
  Receive Date: 20081219
  Receipt Date: 20080519
  Transmission Date: 20090506
  Serious: No
  Sender: FDA-Public Use
  Company Number: A0726817A

PATIENT
  Age: 52 Year
  Sex: Male
  Weight: 129.5 kg

DRUGS (4)
  1. AVODART [Suspect]
     Indication: PROSTATE CANCER
     Dosage: .5MG TWICE PER DAY
     Route: 048
     Dates: start: 20080108
  2. METFORMIN HCL [Concomitant]
  3. GLIPIZIDE [Concomitant]
  4. LIPITOR [Concomitant]

REACTIONS (1)
  - DRUG ADMINISTRATION ERROR [None]
